FAERS Safety Report 11176031 (Version 1)
Quarter: 2015Q2

REPORT INFORMATION
  Report Type: Spontaneous
  Country: US (occurrence: US)
  Receive Date: 20150609
  Receipt Date: 20150609
  Transmission Date: 20150821
  Serious: No
  Sender: FDA-Public Use
  Company Number: US-SHIRE-US201505403

PATIENT
  Age: 7 Year
  Sex: Male
  Weight: 20.41 kg

DRUGS (4)
  1. MULTI VITAMIN [Concomitant]
     Active Substance: VITAMINS
     Indication: NUTRITIONAL SUPPLEMENTATION
     Dosage: UNK, UNKNOWN
     Route: 065
  2. VYVANSE [Suspect]
     Active Substance: LISDEXAMFETAMINE DIMESYLATE
     Indication: ATTENTION DEFICIT/HYPERACTIVITY DISORDER
     Dosage: UNK UNK, UNKNOWN
     Route: 048
     Dates: start: 20150603
  3. FLONASE                            /00908302/ [Concomitant]
     Indication: PRODUCT USED FOR UNKNOWN INDICATION
     Dosage: UNK, UNKNOWN
     Route: 065
  4. FIBER [Concomitant]
     Active Substance: PSYLLIUM HUSK
     Indication: NUTRITIONAL SUPPLEMENTATION
     Dosage: UNK, UNKNOWN
     Route: 065

REACTIONS (2)
  - Eye pruritus [Not Recovered/Not Resolved]
  - Eye irritation [Not Recovered/Not Resolved]

NARRATIVE: CASE EVENT DATE: 20150603
